FAERS Safety Report 16162398 (Version 6)
Quarter: 2019Q3

REPORT INFORMATION
  Report Type: Report from Study
  Country: GB (occurrence: GB)
  Receive Date: 20190405
  Receipt Date: 20190823
  Transmission Date: 20191004
  Serious: Yes (Other)
  Sender: FDA-Public Use
  Company Number: PHHY2019GB074971

PATIENT
  Age: 56 Year
  Sex: Female

DRUGS (2)
  1. HYRIMOZ [Suspect]
     Active Substance: ADALIMUMAB-ADAZ
     Indication: RHEUMATOID ARTHRITIS
     Dosage: 40 MG, UNK
     Route: 058
     Dates: start: 20190322
  2. HYRIMOZ [Suspect]
     Active Substance: ADALIMUMAB-ADAZ
     Dosage: UNK, Q2W
     Route: 058

REACTIONS (13)
  - Cough [Not Recovered/Not Resolved]
  - Injection site erythema [Unknown]
  - Inflammation [Unknown]
  - Joint swelling [Unknown]
  - Injection site paraesthesia [Unknown]
  - Rheumatoid arthritis [Not Recovered/Not Resolved]
  - Pain [Not Recovered/Not Resolved]
  - Peripheral swelling [Not Recovered/Not Resolved]
  - Contusion [Unknown]
  - Drug ineffective [Unknown]
  - Gait disturbance [Not Recovered/Not Resolved]
  - Idiopathic pulmonary fibrosis [Unknown]
  - Injection site mass [Unknown]

NARRATIVE: CASE EVENT DATE: 20190322
